FAERS Safety Report 8420945-5 (Version None)
Quarter: 2012Q2

REPORT INFORMATION
  Report Type: 
  Country: None (occurrence: None)
  Receive Date: 20120608
  Receipt Date: 20120604
  Transmission Date: 20120825
  Serious: Yes (Death, Other)
  Sender: FDA-Public Use
  Company Number: BR-PFIZER INC-2012133742

PATIENT
  Sex: Female

DRUGS (1)
  1. NORDETTE-21 [Suspect]
     Indication: CONTRACEPTION
     Dosage: 1 DF, 1X/DAY
     Route: 064
     Dates: start: 20030101, end: 20090101

REACTIONS (6)
  - SEPSIS [None]
  - NEONATAL ASPHYXIA [None]
  - MATERNAL DRUGS AFFECTING FOETUS [None]
  - NEONATAL RESPIRATORY DISTRESS SYNDROME [None]
  - PREMATURE BABY [None]
  - MATERNAL EXPOSURE TIMING UNSPECIFIED [None]
